FAERS Safety Report 25254805 (Version 1)
Quarter: 2025Q2

REPORT INFORMATION
  Report Type: Spontaneous
  Country: FR (occurrence: FR)
  Receive Date: 20250430
  Receipt Date: 20250430
  Transmission Date: 20250716
  Serious: Yes (Hospitalization)
  Sender: CHEPLAPHARM
  Company Number: None

PATIENT
  Age: 67 Year
  Sex: Female
  Weight: 74 kg

DRUGS (12)
  1. CAPECITABINE [Suspect]
     Active Substance: CAPECITABINE
     Indication: Breast cancer
     Route: 048
     Dates: start: 20240801, end: 20250227
  2. DOLIPRANE [Concomitant]
     Active Substance: ACETAMINOPHEN
  3. VENLAFAXINE [Concomitant]
     Active Substance: VENLAFAXINE HYDROCHLORIDE
     Dosage: 2-0-0?DAILY DOSE: 2 DOSAGE FORM
  4. MIRTAZAPINE [Concomitant]
     Active Substance: MIRTAZAPINE
     Dosage: 0-0-1 ?DAILY DOSE: 1 DOSAGE FORM
  5. AMLODIPINE [Concomitant]
     Active Substance: AMLODIPINE BESYLATE
     Dosage: 1-0-0 ?DAILY DOSE: 1 DOSAGE FORM
  6. MORPHINE SULFATE [Concomitant]
     Active Substance: MORPHINE SULFATE
  7. Dalacin [Concomitant]
  8. PANTOPRAZOLE [Concomitant]
     Active Substance: PANTOPRAZOLE
     Indication: Diarrhoea
     Dosage: 0-0-1 ?DAILY DOSE: 1 DOSAGE FORM
  9. ZOPICLONE [Concomitant]
     Active Substance: ZOPICLONE
     Dosage: 0-0-1 ?DAILY DOSE: 1 DOSAGE FORM
  10. NEFOPAM [Concomitant]
     Active Substance: NEFOPAM
  11. FERROUS FUMARATE [Concomitant]
     Active Substance: FERROUS FUMARATE
  12. FOLIC ACID [Concomitant]
     Active Substance: FOLIC ACID
     Dosage: 0-1-0 ?DAILY DOSE: 1 DOSAGE FORM

REACTIONS (6)
  - Enteritis [Unknown]
  - Osteomyelitis [Unknown]
  - Arthritis infective [Unknown]
  - Renal infarct [Unknown]
  - Splenic infarction [Unknown]
  - Large intestine infection [Unknown]

NARRATIVE: CASE EVENT DATE: 20250201
